FAERS Safety Report 10288812 (Version 2)
Quarter: 2014Q3

REPORT INFORMATION
  Report Type: Spontaneous
  Country: US (occurrence: US)
  Receive Date: 20140709
  Receipt Date: 20140808
  Transmission Date: 20150326
  Serious: No
  Sender: FDA-Public Use
  Company Number: US-LUNDBECK-DKLU1100833

PATIENT
  Sex: Female

DRUGS (22)
  1. SABRIL [Suspect]
     Active Substance: VIGABATRIN
  2. SABRIL [Suspect]
     Active Substance: VIGABATRIN
     Route: 048
     Dates: start: 20140512
  3. SABRIL [Suspect]
     Active Substance: VIGABATRIN
  4. ATIVAN [Concomitant]
     Active Substance: LORAZEPAM
     Indication: PRODUCT USED FOR UNKNOWN INDICATION
     Route: 048
  5. TOPIRAMATE. [Concomitant]
     Active Substance: TOPIRAMATE
     Indication: CONVULSION
  6. TOPIRAMATE. [Concomitant]
     Active Substance: TOPIRAMATE
  7. VICODIN [Concomitant]
     Active Substance: ACETAMINOPHEN\HYDROCODONE BITARTRATE
     Indication: PRODUCT USED FOR UNKNOWN INDICATION
     Dosage: 5 MG - 300 MG EVERY 6 HOURS
     Route: 048
  8. TOPAMAX [Suspect]
     Active Substance: TOPIRAMATE
     Indication: PRODUCT USED FOR UNKNOWN INDICATION
     Route: 048
  9. CLONAZEPAM. [Suspect]
     Active Substance: CLONAZEPAM
  10. LEVETIRACETAM. [Concomitant]
     Active Substance: LEVETIRACETAM
     Indication: CONVULSION
  11. VIMPAT [Suspect]
     Active Substance: LACOSAMIDE
     Indication: CONVULSION
     Route: 048
  12. KEPPRA [Suspect]
     Active Substance: LEVETIRACETAM
     Route: 048
  13. CLONAZEPAM. [Suspect]
     Active Substance: CLONAZEPAM
     Indication: PRODUCT USED FOR UNKNOWN INDICATION
  14. CLONAZEPAM. [Suspect]
     Active Substance: CLONAZEPAM
  15. LACOSAMIDE [Concomitant]
     Active Substance: LACOSAMIDE
     Indication: CONVULSION
  16. SABRIL [Suspect]
     Active Substance: VIGABATRIN
     Indication: COMPLEX PARTIAL SEIZURES
     Route: 048
     Dates: start: 20140512
  17. LEVETIRACETAM. [Concomitant]
     Active Substance: LEVETIRACETAM
  18. CLONIDINE. [Concomitant]
     Active Substance: CLONIDINE
     Indication: PRODUCT USED FOR UNKNOWN INDICATION
     Route: 048
  19. LEVOTHYROXINE [Concomitant]
     Active Substance: LEVOTHYROXINE
     Indication: PRODUCT USED FOR UNKNOWN INDICATION
     Route: 048
  20. SABRIL [Suspect]
     Active Substance: VIGABATRIN
  21. KEPPRA [Suspect]
     Active Substance: LEVETIRACETAM
     Indication: PRODUCT USED FOR UNKNOWN INDICATION
     Route: 048
  22. VITAMIN D2 [Concomitant]
     Active Substance: ERGOCALCIFEROL
     Indication: PRODUCT USED FOR UNKNOWN INDICATION
     Route: 048

REACTIONS (3)
  - Dizziness [Unknown]
  - Fatigue [Unknown]
  - Device failure [Not Recovered/Not Resolved]
